FAERS Safety Report 14933728 (Version 2)
Quarter: 2018Q3

REPORT INFORMATION
  Report Type: Not Available
  Country: US (occurrence: US)
  Receive Date: 20180524
  Receipt Date: 20180809
  Transmission Date: 20181010
  Serious: No
  Sender: FDA-Public Use
  Company Number: US-NEUROCRINE BIOSCIENCES INC.-2018NBI01421

PATIENT
  Age: 67 Year
  Sex: Male

DRUGS (6)
  1. LATUDA [Concomitant]
     Active Substance: LURASIDONE HYDROCHLORIDE
     Indication: PSYCHOTIC DISORDER
     Route: 048
  2. VIIBRYD [Concomitant]
     Active Substance: VILAZODONE HYDROCHLORIDE
     Indication: DEPRESSION
     Route: 048
  3. DEPAKOTE [Concomitant]
     Active Substance: DIVALPROEX SODIUM
     Indication: SCHIZOAFFECTIVE DISORDER
  4. INGREZZA [Suspect]
     Active Substance: VALBENAZINE
     Dates: start: 20180307, end: 2018
  5. INGREZZA [Suspect]
     Active Substance: VALBENAZINE
     Indication: TARDIVE DYSKINESIA
     Route: 048
     Dates: start: 20180116, end: 2018
  6. INGREZZA [Suspect]
     Active Substance: VALBENAZINE
     Dates: start: 20180425

REACTIONS (1)
  - Akinesia [Recovering/Resolving]

NARRATIVE: CASE EVENT DATE: 201803
